FAERS Safety Report 14955062 (Version 1)
Quarter: 2018Q2

REPORT INFORMATION
  Report Type: Spontaneous
  Country: FR (occurrence: FR)
  Receive Date: 20180531
  Receipt Date: 20180531
  Transmission Date: 20180711
  Serious: Yes (Life-Threatening, Hospitalization)
  Sender: FDA-Public Use
  Company Number: FR-CONCORDIA PHARMACEUTICALS INC.-E2B_00011973

PATIENT
  Age: 23 Year
  Sex: Female
  Weight: 53 kg

DRUGS (13)
  1. ZITHROMAX 250 MG, COMPRIM? PELLICUL? [Concomitant]
     Route: 048
  2. PIVALONE (NEOMYCIN\POLYMYXIN B\TIXOCORTOL) [Concomitant]
     Active Substance: NEOMYCIN\POLYMYXIN B\TIXOCORTOL
     Route: 055
  3. INEXIUM 40 MG, COMPRIM? GASTRO-R?SISTANT [Concomitant]
     Active Substance: ESOMEPRAZOLE
     Route: 048
  4. CREON 25 000 U, GRANUL?S GASTRO-R?SISTANTS EN G?LULE [Concomitant]
     Route: 048
  5. CHOLURSO 250 MG, COMPRIM? PELLICUL? [Concomitant]
     Route: 048
  6. ZARZIO [Concomitant]
     Active Substance: FILGRASTIM
     Route: 042
  7. ROVALCYTE 450 MG, COMPRIM? PELLICUL? [Concomitant]
     Route: 048
  8. CALCIDOSE VITAMINE D, POUDRE ORALE EN SACHET-DOSE [Concomitant]
     Active Substance: CALCIUM\CHOLECALCIFEROL
     Route: 048
  9. CELLCEPT [Suspect]
     Active Substance: MYCOPHENOLATE MOFETIL\MYCOPHENOLATE MOFETIL HYDROCHLORIDE
     Indication: PROPHYLAXIS AGAINST TRANSPLANT REJECTION
     Route: 048
     Dates: start: 201706, end: 201712
  10. ADOPORT [Suspect]
     Active Substance: TACROLIMUS
     Indication: PROPHYLAXIS AGAINST TRANSPLANT REJECTION
     Route: 048
     Dates: start: 201706
  11. FUNGIZONE 10 POUR CENT, SUSPENSION BUVABLE [Concomitant]
     Route: 048
  12. AMLOR 5 MG, G?LULE [Concomitant]
     Active Substance: AMLODIPINE BESYLATE
     Route: 048
  13. PREDNISOLONE. [Suspect]
     Active Substance: PREDNISOLONE
     Indication: PROPHYLAXIS AGAINST TRANSPLANT REJECTION
     Route: 048
     Dates: start: 201706, end: 201801

REACTIONS (1)
  - B-cell lymphoma [Not Recovered/Not Resolved]

NARRATIVE: CASE EVENT DATE: 201712
